FAERS Safety Report 19381764 (Version 5)
Quarter: 2021Q3

REPORT INFORMATION
  Report Type: Other
  Country: EG (occurrence: EG)
  Receive Date: 20210607
  Receipt Date: 20210902
  Transmission Date: 20211014
  Serious: Yes (Hospitalization)
  Sender: FDA-Public Use
  Company Number: EG-ROCHE-2840295

PATIENT
  Age: 37 Year
  Sex: Male
  Weight: 61 kg

DRUGS (16)
  1. TEGRETOL [Concomitant]
     Active Substance: CARBAMAZEPINE
     Route: 048
     Dates: start: 20200621, end: 20200629
  2. METHYLPREDNISOLONE. [Concomitant]
     Active Substance: METHYLPREDNISOLONE
     Route: 042
     Dates: start: 20200813, end: 20200813
  3. AVIL [Concomitant]
     Active Substance: PHENIRAMINE
     Route: 042
     Dates: start: 20200813, end: 20200813
  4. CONVENTIN [Concomitant]
     Dosage: 1 CAPSULE
     Route: 048
     Dates: start: 20200621
  5. METHYLPREDNISOLONE. [Concomitant]
     Active Substance: METHYLPREDNISOLONE
     Route: 042
     Dates: start: 20200221, end: 20200221
  6. AVIL [Concomitant]
     Active Substance: PHENIRAMINE
     Indication: PREMEDICATION
     Route: 042
     Dates: start: 20200207, end: 20200207
  7. AVIL [Concomitant]
     Active Substance: PHENIRAMINE
     Route: 042
     Dates: start: 20210315, end: 20210315
  8. OCRELIZUMAB. [Suspect]
     Active Substance: OCRELIZUMAB
     Dosage: DOSING FORMULATION: 600 MG/500 ML, START TIME: 09:30, END TIME: 12.00
     Route: 042
     Dates: start: 20210315, end: 20210315
  9. METHYLPREDNISOLONE. [Concomitant]
     Active Substance: METHYLPREDNISOLONE
     Indication: PREMEDICATION
     Route: 042
     Dates: start: 20200207, end: 20200207
  10. OCRELIZUMAB. [Suspect]
     Active Substance: OCRELIZUMAB
     Dosage: DOSING FORMULATION: 300 MG/250 ML, START TIME: 08:30, END TIME: 11.00
     Route: 042
     Dates: start: 20200221, end: 20200221
  11. TEGRETOL [Concomitant]
     Active Substance: CARBAMAZEPINE
     Route: 048
     Dates: start: 20210315
  12. OCRELIZUMAB. [Suspect]
     Active Substance: OCRELIZUMAB
     Indication: MULTIPLE SCLEROSIS
     Dosage: DOSING FORMULATION: 300 MG/250 ML, START TIME: 09:30, END TIME: 12.00
     Route: 042
     Dates: start: 20200207, end: 20200207
  13. OCRELIZUMAB. [Suspect]
     Active Substance: OCRELIZUMAB
     Dosage: DOSING FORMULATION: 600 MG/500 ML, START TIME: 09:00, END TIME: 12.35
     Route: 042
     Dates: start: 20200813, end: 20200813
  14. TEGRETOL [Concomitant]
     Active Substance: CARBAMAZEPINE
     Route: 048
     Dates: start: 20200629
  15. METHYLPREDNISOLONE. [Concomitant]
     Active Substance: METHYLPREDNISOLONE
     Route: 042
     Dates: start: 20210315, end: 20210315
  16. AVIL [Concomitant]
     Active Substance: PHENIRAMINE
     Route: 042
     Dates: start: 20200221, end: 20200221

REACTIONS (1)
  - COVID-19 [Recovered/Resolved with Sequelae]

NARRATIVE: CASE EVENT DATE: 20210522
